FAERS Safety Report 10795986 (Version 1)
Quarter: 2015Q1

REPORT INFORMATION
  Report Type: Report from Study
  Country: CA (occurrence: CA)
  Receive Date: 20150216
  Receipt Date: 20150216
  Transmission Date: 20150721
  Serious: Yes (Other)
  Sender: FDA-Public Use
  Company Number: CA-ROCHE-1283192

PATIENT
  Age: 67 Year
  Sex: Female
  Weight: 77.1 kg

DRUGS (22)
  1. RITUXAN [Suspect]
     Active Substance: RITUXIMAB
     Indication: OFF LABEL USE
  2. DIPHENHYDRAMINE HCL [Concomitant]
     Active Substance: DIPHENHYDRAMINE HYDROCHLORIDE
     Indication: PREMEDICATION
     Route: 048
     Dates: start: 20120614
  3. METHYLPREDNISOLONE. [Concomitant]
     Active Substance: METHYLPREDNISOLONE
     Indication: PREMEDICATION
     Route: 042
     Dates: start: 20120614
  4. ALLOPURINOL. [Concomitant]
     Active Substance: ALLOPURINOL
  5. RITUXAN [Suspect]
     Active Substance: RITUXIMAB
     Indication: CONNECTIVE TISSUE DISORDER
     Dosage: LAST DOSE PRIOR TO SAE: 12/SEP/2013, SHE RECEIVED LAST DOSE ON 10/APR/2014.?FREQUENCY : DAY 1, 15.
     Route: 042
     Dates: start: 20120614
  6. ACETAMINOPHEN. [Concomitant]
     Active Substance: ACETAMINOPHEN
     Indication: PREMEDICATION
     Route: 048
     Dates: start: 20120614
  7. LANSOPROL [Concomitant]
  8. GRAVOL [Concomitant]
     Active Substance: DIMENHYDRINATE
     Indication: PREMEDICATION
     Route: 048
     Dates: start: 20130312
  9. RITUXAN [Suspect]
     Active Substance: RITUXIMAB
     Indication: DERMATOMYOSITIS
  10. SPIRONOLACTONE. [Concomitant]
     Active Substance: SPIRONOLACTONE
  11. LASIX [Concomitant]
     Active Substance: FUROSEMIDE
  12. VITAMIN E [Concomitant]
     Active Substance: .ALPHA.-TOCOPHEROL
  13. PREDNISONE. [Concomitant]
     Active Substance: PREDNISONE
  14. PLAQUENIL [Concomitant]
     Active Substance: HYDROXYCHLOROQUINE SULFATE
  15. LISINOPRIL. [Concomitant]
     Active Substance: LISINOPRIL
  16. DITAMIN [Concomitant]
  17. ALEVE [Concomitant]
     Active Substance: NAPROXEN SODIUM
  18. BISOPROLOL [Concomitant]
     Active Substance: BISOPROLOL
  19. CLONIDINE. [Concomitant]
     Active Substance: CLONIDINE
  20. FOLIC ACID. [Concomitant]
     Active Substance: FOLIC ACID
  21. DILAUDID [Concomitant]
     Active Substance: HYDROMORPHONE HYDROCHLORIDE
  22. METHOTREXATE [Concomitant]
     Active Substance: METHOTREXATE

REACTIONS (8)
  - Respiratory distress [Recovered/Resolved]
  - Medication error [Unknown]
  - Dysphagia [Recovered/Resolved]
  - Off label use [Unknown]
  - Speech disorder [Recovered/Resolved]
  - Nausea [Not Recovered/Not Resolved]
  - Dyspnoea [Not Recovered/Not Resolved]
  - Pain of skin [Recovering/Resolving]

NARRATIVE: CASE EVENT DATE: 201309
